FAERS Safety Report 8592976-6 (Version None)
Quarter: 2012Q3

REPORT INFORMATION
  Report Type: 
  Country: None (occurrence: None)
  Receive Date: 20120814
  Receipt Date: 20120808
  Transmission Date: 20120928
  Serious: Yes (Life-Threatening, Other)
  Sender: FDA-Public Use
  Company Number: FR-009507513-1208FRA004830

PATIENT

DRUGS (16)
  1. TRUVADA [Suspect]
     Indication: HIV INFECTION
     Dosage: UNK
     Dates: start: 20120301
  2. ACETAMINOPHEN [Suspect]
     Dosage: 500 MG, QD
     Route: 042
     Dates: start: 20120711
  3. PERIKABIVEN [Suspect]
     Dosage: UNK
     Route: 051
     Dates: start: 20120710
  4. POTASSIUM CHLORIDE [Suspect]
     Dosage: UNK
     Route: 048
     Dates: start: 20120710
  5. ACUPAN [Suspect]
     Dosage: 120 MG, QD
     Route: 042
     Dates: start: 20120716, end: 20120727
  6. AMIKACIN [Suspect]
     Dosage: 900 MG, QD
     Route: 042
     Dates: start: 20120711
  7. OLANZAPINE [Suspect]
     Dosage: 5 MG, UNK
     Route: 048
     Dates: start: 20120101
  8. BACTRIM [Suspect]
     Dosage: 800 MG, QD
     Dates: start: 20120713
  9. CLARITHROMYCIN [Suspect]
     Dosage: 500 MG, QD
     Route: 048
     Dates: start: 20120711
  10. ISENTRESS [Suspect]
     Indication: HIV INFECTION
     Dosage: UNK
     Route: 048
     Dates: start: 20120501
  11. LEUCOVORIN CALCIUM [Suspect]
     Dosage: UNK
     Route: 048
     Dates: start: 20120710
  12. CERNEVIT-12 [Suspect]
     Dosage: UNK
     Route: 042
     Dates: start: 20120710, end: 20120802
  13. KALETRA [Suspect]
     Indication: HIV INFECTION
     Dosage: UNK
     Dates: start: 20120301
  14. PRAZEPAM [Suspect]
     Dosage: 1 DF, QD
     Route: 048
     Dates: start: 20120710
  15. MYAMBUTOL [Suspect]
     Dosage: 1 DF, BID
     Dates: start: 20120711
  16. RIFABUTIN [Suspect]
     Dosage: UNK
     Route: 042
     Dates: start: 20120711

REACTIONS (2)
  - COMA [None]
  - CONVULSION [None]
